FAERS Safety Report 13083242 (Version 1)
Quarter: 2017Q1

REPORT INFORMATION
  Report Type: Spontaneous
  Country: US (occurrence: US)
  Receive Date: 20170104
  Receipt Date: 20170104
  Transmission Date: 20170428
  Serious: No
  Sender: FDA-Public Use
  Company Number: US-CELGENEUS-USA-2016128799

PATIENT
  Sex: Male

DRUGS (1)
  1. POMALYST [Suspect]
     Active Substance: POMALIDOMIDE
     Indication: PRODUCT USED FOR UNKNOWN INDICATION
     Dosage: 4 MILLIGRAM FOR 21 DAYS FOLLOW WITH 7 DAYS OFF
     Route: 048
     Dates: start: 20140325, end: 20161209

REACTIONS (1)
  - Nasopharyngitis [Not Recovered/Not Resolved]
